FAERS Safety Report 12879970 (Version 3)
Quarter: 2017Q1

REPORT INFORMATION
  Report Type: Spontaneous
  Country: US (occurrence: US)
  Receive Date: 20161025
  Receipt Date: 20170109
  Transmission Date: 20170428
  Serious: No
  Sender: FDA-Public Use
  Company Number: US-PFIZER INC-2016494987

PATIENT
  Age: 56 Year
  Sex: Female
  Weight: 106.59 kg

DRUGS (7)
  1. DILANTIN [Interacting]
     Active Substance: PHENYTOIN
     Indication: SEIZURE
     Dosage: 200 MG, 2X/DAY
     Route: 048
  2. LAMICTAL [Interacting]
     Active Substance: LAMOTRIGINE
     Indication: SEIZURE
     Dosage: 1000 MG, UNK
     Route: 048
     Dates: start: 1998
  3. DILANTIN [Interacting]
     Active Substance: PHENYTOIN
     Dosage: UNK, 2X/DAY
     Dates: start: 1963
  4. DILANTIN [Suspect]
     Active Substance: PHENYTOIN
     Indication: EPILEPSY
     Dosage: 300 MG, 1X/DAY
     Route: 048
  5. LAMICTAL [Interacting]
     Active Substance: LAMOTRIGINE
     Dosage: 300MG ONE TABLET EVERY MORNING AND 100MG ONE TABLET EVERY EVENING
     Route: 048
  6. LAMICTAL [Interacting]
     Active Substance: LAMOTRIGINE
     Dosage: 200 MG, 2X/DAY
     Route: 048
  7. LAMICTAL [Interacting]
     Active Substance: LAMOTRIGINE
     Dosage: 300MG, DAILY
     Route: 048

REACTIONS (2)
  - Drug level decreased [Unknown]
  - Drug interaction [Unknown]
